FAERS Safety Report 19332579 (Version 1)
Quarter: 2021Q2

REPORT INFORMATION
  Report Type: Spontaneous
  Country: FR (occurrence: FR)
  Receive Date: 20210529
  Receipt Date: 20210529
  Transmission Date: 20210717
  Serious: Yes (Hospitalization)
  Sender: FDA-Public Use
  Company Number: FR-NOVA LABORATORIES LIMITED-2112123

PATIENT
  Age: 48 Year
  Sex: Female
  Weight: 45 kg

DRUGS (3)
  1. HUMIRA [Suspect]
     Active Substance: ADALIMUMAB
     Route: 058
     Dates: start: 20160928, end: 20170401
  2. TOTAL PARENTERAL NUTRITION INJECTION (25)AMINO ACIDS NOS, CALCIUM GLUC [Concomitant]
     Active Substance: AMINO ACIDS\DEXTROSE\ELECTROLYTES NOS\SOYBEAN OIL
     Dates: start: 20170311
  3. PURIXAN [Suspect]
     Active Substance: MERCAPTOPURINE
     Indication: COLITIS ULCERATIVE
     Dates: start: 20160928, end: 20170301

REACTIONS (2)
  - Off label use [None]
  - Crohn^s disease [None]
